FAERS Safety Report 20188990 (Version 1)
Quarter: 2021Q4

REPORT INFORMATION
  Report Type: Spontaneous
  Country: JP (occurrence: JP)
  Receive Date: 20211215
  Receipt Date: 20211215
  Transmission Date: 20220303
  Serious: Yes (Hospitalization)
  Sender: FDA-Public Use
  Company Number: JP-Eisai-202108488_LEN_P_1

PATIENT
  Sex: Female

DRUGS (2)
  1. LENVIMA [Suspect]
     Active Substance: LENVATINIB
     Indication: Thyroid cancer
     Route: 048
     Dates: start: 20211004, end: 20211018
  2. LENVIMA [Suspect]
     Active Substance: LENVATINIB
     Dosage: 24 MG, 2 WEEKS ON AND 1 DAY OFF
     Route: 048
     Dates: start: 20211025, end: 20211108

REACTIONS (2)
  - Pleural effusion [Not Recovered/Not Resolved]
  - Proteinuria [Recovering/Resolving]

NARRATIVE: CASE EVENT DATE: 20211018
